FAERS Safety Report 9100889 (Version 1)
Quarter: 2013Q1

REPORT INFORMATION
  Report Type: Spontaneous
  Country: US (occurrence: None)
  Receive Date: 20130220
  Receipt Date: 20130220
  Transmission Date: 20140127
  Serious: Yes (Disabling)
  Sender: FDA-Public Use
  Company Number: None

PATIENT
  Age: 33 Year
  Sex: Male
  Weight: 79.38 kg

DRUGS (1)
  1. LEVOFLOXACIN 500 MG LUPIN [Suspect]
     Indication: SINUSITIS
     Route: 048
     Dates: start: 20130202, end: 20130205

REACTIONS (2)
  - Arthralgia [None]
  - Arthralgia [None]
